FAERS Safety Report 5676357-0 (Version None)
Quarter: 2008Q1

REPORT INFORMATION
  Report Type: 
  Country: None (occurrence: None)
  Receive Date: 20080321
  Receipt Date: 20080310
  Transmission Date: 20080703
  Serious: Yes (Hospitalization)
  Sender: FDA-Public Use
  Company Number: FR-PFIZER INC-2008022805

PATIENT
  Age: 93 Year
  Sex: Female

DRUGS (5)
  1. XANAX [Suspect]
     Route: 048
  2. PROZAC [Suspect]
     Route: 048
     Dates: start: 20070313, end: 20071016
  3. STILNOX [Suspect]
     Route: 048
  4. DOLIPRANE [Suspect]
     Route: 048
  5. DOMPERIDONE [Concomitant]
     Route: 048
     Dates: start: 20070915, end: 20070930

REACTIONS (1)
  - NEUTROPENIA [None]
